FAERS Safety Report 9056235 (Version 2)
Quarter: 2013Q2

REPORT INFORMATION
  Report Type: Spontaneous
  Country: US (occurrence: US)
  Receive Date: 20130205
  Receipt Date: 20130403
  Transmission Date: 20140414
  Serious: Yes (Other)
  Sender: FDA-Public Use
  Company Number: US-ASTELLAS-2013US001089

PATIENT
  Age: 76 Year
  Sex: Male

DRUGS (7)
  1. XTANDI [Suspect]
     Indication: PROSTATE CANCER
     Dosage: 160 MG, UID/QD
     Route: 048
     Dates: start: 20121129, end: 20130125
  2. PERCOCET /00446701/ [Suspect]
     Indication: SPINAL PAIN
     Dosage: 7.5 MG, PRN
     Route: 065
  3. PERCOCET /00446701/ [Suspect]
     Indication: METASTASES TO SPINE
  4. OXYCONTIN [Suspect]
     Indication: SPINAL PAIN
     Dosage: 10 MG, Q12 HOURS
     Route: 065
  5. OXYCONTIN [Suspect]
     Indication: METASTASES TO SPINE
  6. PROMACTA [Concomitant]
     Indication: PRODUCT USED FOR UNKNOWN INDICATION
     Dosage: UNK
     Route: 065
  7. TRAZODONE [Suspect]
     Indication: PRODUCT USED FOR UNKNOWN INDICATION
     Dosage: 50 MG, EVERY EVENING

REACTIONS (1)
  - Nausea [Unknown]
